FAERS Safety Report 6283400-7 (Version None)
Quarter: 2009Q3

REPORT INFORMATION
  Report Type: 
  Country: None (occurrence: None)
  Receive Date: 20090724
  Receipt Date: 20090720
  Transmission Date: 20100115
  Serious: Yes (Life-Threatening)
  Sender: FDA-Public Use
  Company Number: GB-ROXANE LABORATORIES, INC.-2009-RO-00720RO

PATIENT
  Age: 51 Year
  Sex: Male

DRUGS (7)
  1. CYCLOPHOSPHAMIDE [Suspect]
     Indication: CHRONIC LYMPHOCYTIC LEUKAEMIA
     Route: 048
  2. CYCLOPHOSPHAMIDE [Suspect]
     Route: 048
  3. FLUDARABINE PHOSPHATE [Suspect]
     Indication: CHRONIC LYMPHOCYTIC LEUKAEMIA
  4. FLUDARABINE PHOSPHATE [Suspect]
     Route: 048
  5. PREDNISOLONE [Concomitant]
     Indication: PANCYTOPENIA
     Dosage: 60 MG
     Route: 048
  6. PREDNISOLONE [Concomitant]
     Dosage: 30 MG
     Route: 048
  7. LENOGRASTIM [Concomitant]
     Indication: PANCYTOPENIA
     Dosage: 263 MCG

REACTIONS (1)
  - PANCYTOPENIA [None]
